FAERS Safety Report 23185484 (Version 2)
Quarter: 2023Q4

REPORT INFORMATION
  Report Type: Report from Study
  Country: RO (occurrence: RO)
  Receive Date: 20231115
  Receipt Date: 20231122
  Transmission Date: 20240110
  Serious: Yes (Hospitalization)
  Sender: FDA-Public Use
  Company Number: RO-ABBVIE-5491116

PATIENT
  Age: 60 Year
  Sex: Female

DRUGS (2)
  1. CARBIDOPA\LEVODOPA [Suspect]
     Active Substance: CARBIDOPA\LEVODOPA
     Indication: Parkinson^s disease
     Dosage: DM=9.00 DC=2.00 ED=1.20 NRED=0; DMN=0.00 DCN=0.00 EDN=0.00 NREDN=0
     Route: 050
     Dates: start: 20190123
  2. CARBIDOPA\LEVODOPA [Suspect]
     Active Substance: CARBIDOPA\LEVODOPA

REACTIONS (10)
  - Medical device pain [Recovering/Resolving]
  - Abdominal pain upper [Recovering/Resolving]
  - Diverticulum intestinal [Recovering/Resolving]
  - Gastrointestinal candidiasis [Recovering/Resolving]
  - Haemorrhoids [Recovering/Resolving]
  - Colitis [Recovering/Resolving]
  - Gastrointestinal disorder [Recovering/Resolving]
  - Escherichia urinary tract infection [Recovering/Resolving]
  - Duodenogastric reflux [Recovering/Resolving]
  - Hyperaemia [Recovering/Resolving]

NARRATIVE: CASE EVENT DATE: 20231109
